FAERS Safety Report 21411604 (Version 1)
Quarter: 2022Q4

REPORT INFORMATION
  Report Type: Spontaneous
  Country: HR (occurrence: HR)
  Receive Date: 20221005
  Receipt Date: 20221005
  Transmission Date: 20230112
  Serious: Yes (Other)
  Sender: FDA-Public Use
  Company Number: None

PATIENT
  Sex: Female
  Weight: 70 kg

DRUGS (7)
  1. LOSARTAN POTASSIUM [Suspect]
     Active Substance: LOSARTAN POTASSIUM
     Indication: Product used for unknown indication
     Dosage: 14TBL. X 50MG , UNIT DOSE : 700 MG , FREQUENCY TIME : 1 DAY , DURATION : 1 DAY , ADDIITONALL INFORMA
     Dates: start: 20220727, end: 20220727
  2. ACETAMINOPHEN\CAFFEINE\CODEINE\PROPYPHENAZONE [Suspect]
     Active Substance: ACETAMINOPHEN\CAFFEINE\CODEINE\PROPYPHENAZONE
     Indication: Product used for unknown indication
     Dosage: 1 DF = 1 TBL = 210 MG PARACETAMOL, 250 MG PROPYPHENAZONE, 10 MG CODEINE PHOSPHATE HEMIHYDRATE AND 25
     Dates: start: 20220727, end: 20220727
  3. RISPERIDONE [Suspect]
     Active Substance: RISPERIDONE
     Indication: Product used for unknown indication
     Dosage: 60TBL.X2MG , UNIT DOSE : 120 MG  , FREQUENCY TIME : 1 DAY   , DURATION : 1 DAY , ADDITIONAL INFORMAT
     Dates: start: 20220727, end: 20220727
  4. RISPERIDONE [Suspect]
     Active Substance: RISPERIDONE
     Indication: Product used for unknown indication
     Dosage: 30TBL. X 2MG , UNIT DOSE : 60 MG  , FREQUENCY TIME : 1 DAY  , DURATION : 1 DAY , ADDITIONAL INFORMAT
     Dates: start: 20220727, end: 20220727
  5. RISPERIDONE [Suspect]
     Active Substance: RISPERIDONE
     Indication: Product used for unknown indication
     Dosage: 100TBL. X 2MG , UNIT DOSE : 200 MG   , FREQUENCY TIME : 1 DAY   , DURATION : 1 DAY , ADDITIONAL INFO
     Dates: start: 20220727, end: 20220727
  6. AKINETON [Suspect]
     Active Substance: BIPERIDEN HYDROCHLORIDE
     Indication: Product used for unknown indication
     Dosage: 60TBL. X 2MG , UNIT DOSE : 120 MG   , FREQUENCY TIME : 1 DAY  , DURATION : 1 DAY , ADDITIONAL INFORM
     Dates: start: 20220727, end: 20220727
  7. NORMABEL [Suspect]
     Active Substance: DIAZEPAM
     Indication: Product used for unknown indication
     Dosage: 120TBL. X 5MG , UNIT DOSE : 600 MG  , FREQUENCY TIME : 1 DAY  , DURATION : 1 DAY , ADDITIONAL INFORM
     Dates: start: 20220727, end: 20220727

REACTIONS (4)
  - Suicide attempt [Unknown]
  - Sopor [Unknown]
  - Hypotension [Unknown]
  - Intentional overdose [Unknown]

NARRATIVE: CASE EVENT DATE: 20220727
